FAERS Safety Report 11230944 (Version 1)
Quarter: 2015Q2

REPORT INFORMATION
  Report Type: Spontaneous
  Country: US (occurrence: None)
  Receive Date: 20150629
  Receipt Date: 20150629
  Transmission Date: 20150821
  Serious: No
  Sender: FDA-Public Use
  Company Number: None

PATIENT
  Age: 70 Year
  Sex: Female
  Weight: 106.6 kg

DRUGS (13)
  1. FISH OIL [Concomitant]
     Active Substance: FISH OIL
  2. CHROMIUM PICOLINATE [Concomitant]
     Active Substance: CHROMIUM PICOLINATE
  3. FLAXSEED [Concomitant]
     Active Substance: FLAX SEED
  4. LECITHIN [Concomitant]
     Active Substance: LECITHIN
  5. POTASSIUM CL [Concomitant]
     Active Substance: POTASSIUM CHLORIDE
  6. CALCIUM [Concomitant]
     Active Substance: CALCIUM
  7. BIOTIN [Concomitant]
     Active Substance: BIOTIN
  8. AMLODIPINE BESYLATE 10MG LUPIN [Suspect]
     Active Substance: AMLODIPINE BESYLATE
     Indication: HYPERTENSION
     Route: 048
     Dates: start: 20150325, end: 20150402
  9. TRADJENTA [Concomitant]
     Active Substance: LINAGLIPTIN
  10. GABAPENTIN. [Concomitant]
     Active Substance: GABAPENTIN
  11. METOPROLOL TARTRATE. [Concomitant]
     Active Substance: METOPROLOL TARTRATE
  12. FUROSEMIDE. [Concomitant]
     Active Substance: FUROSEMIDE
  13. EQUATE MULTIVITAMIN [Concomitant]

REACTIONS (3)
  - Fluid retention [None]
  - Oedema peripheral [None]
  - Constipation [None]

NARRATIVE: CASE EVENT DATE: 20150626
